FAERS Safety Report 6938182-X (Version None)
Quarter: 2010Q3

REPORT INFORMATION
  Report Type: 
  Country: None (occurrence: None)
  Receive Date: 20100824
  Receipt Date: 20100813
  Transmission Date: 20110219
  Serious: Yes (Other)
  Sender: FDA-Public Use
  Company Number: US-RB-013435-10

PATIENT
  Age: 59 Year
  Sex: Male

DRUGS (3)
  1. MUCINEX [Suspect]
     Route: 048
     Dates: start: 20100810
  2. MUCINEX [Suspect]
     Dosage: TOOK HALF A PILL OF THE PRODUCT LAST NIGHT (12-AUG-2010)
     Route: 048
     Dates: start: 20100812
  3. LISINOPRIL [Concomitant]
     Indication: BLOOD PRESSURE

REACTIONS (3)
  - HAEMOPTYSIS [None]
  - NO ADVERSE EVENT [None]
  - WRONG TECHNIQUE IN DRUG USAGE PROCESS [None]
